FAERS Safety Report 5743367-4 (Version None)
Quarter: 2008Q2

REPORT INFORMATION
  Report Type: 
  Country: None (occurrence: None)
  Receive Date: 20080519
  Receipt Date: 20080519
  Transmission Date: 20081010
  Serious: Yes (Hospitalization)
  Sender: FDA-Public Use
  Company Number: None

PATIENT
  Age: 30 Year
  Sex: Female
  Weight: 87.5442 kg

DRUGS (1)
  1. NUVARING [Suspect]
     Indication: MENSTRUATION IRREGULAR
     Dosage: 0.120MG PER DAY VAG
     Route: 067
     Dates: start: 20080126, end: 20080515

REACTIONS (10)
  - ADVERSE DRUG REACTION [None]
  - BREAST TENDERNESS [None]
  - DIZZINESS POSTURAL [None]
  - FATIGUE [None]
  - HEADACHE [None]
  - MALAISE [None]
  - NAUSEA [None]
  - SYNCOPE [None]
  - VISION BLURRED [None]
  - WEIGHT INCREASED [None]
